FAERS Safety Report 9284546 (Version 1)
Quarter: 2013Q2

REPORT INFORMATION
  Report Type: Spontaneous
  Country: US (occurrence: US)
  Receive Date: 20130511
  Receipt Date: 20130511
  Transmission Date: 20140414
  Serious: Yes (Other)
  Sender: FDA-Public Use
  Company Number: US-ACCORD-017535

PATIENT
  Age: 40 Year
  Sex: Female

DRUGS (4)
  1. CLONAZEPAM [Suspect]
     Indication: PRODUCT USED FOR UNKNOWN INDICATION
     Route: 048
     Dates: start: 201302
  2. WELLBUTRIN XL [Concomitant]
     Route: 048
  3. INDERAL [Concomitant]
     Route: 048
  4. HYDROCHLOROTHIAZIDE [Concomitant]
     Route: 048

REACTIONS (1)
  - Drug screen negative [Recovered/Resolved]
